FAERS Safety Report 9062812 (Version 1)
Quarter: 2013Q1

REPORT INFORMATION
  Report Type: Spontaneous
  Country: US (occurrence: US)
  Receive Date: 20130129
  Receipt Date: 20130129
  Transmission Date: 20140127
  Serious: No
  Sender: FDA-Public Use
  Company Number: US-ABBOTT-12P-163-0945154-00

PATIENT
  Age: 58 Year
  Sex: Male
  Weight: 99.88 kg

DRUGS (16)
  1. HUMIRA 40 MG/0.8 ML PEN [Suspect]
     Indication: ANKYLOSING SPONDYLITIS
     Route: 058
     Dates: start: 20120609
  2. UNKNOWN MEDICATION [Concomitant]
     Indication: BLOOD PRESSURE
  3. UNKNOWN MEDICATION [Concomitant]
     Indication: BLOOD CHOLESTEROL
  4. VICODIN [Concomitant]
     Indication: PAIN
  5. RITALIN [Concomitant]
     Indication: ATTENTION DEFICIT/HYPERACTIVITY DISORDER
  6. LYRICA [Concomitant]
     Indication: PAIN
  7. LYRICA [Concomitant]
     Indication: OSTEOARTHRITIS
  8. LYRICA [Concomitant]
     Indication: ARTHRITIS
  9. LYRICA [Concomitant]
     Indication: OSTEOPENIA
  10. MELOXICAM [Concomitant]
     Indication: ANKYLOSING SPONDYLITIS
  11. METAXALONE [Concomitant]
     Indication: MUSCLE RELAXANT THERAPY
  12. DIOVAN HCT [Concomitant]
     Indication: HYPERTENSION
  13. FLOVENT [Concomitant]
     Indication: ASTHMA
  14. ALBUTEROL [Concomitant]
     Indication: ASTHMA
  15. LIPITOR [Concomitant]
     Indication: BLOOD CHOLESTEROL INCREASED
  16. SYNTHROID [Concomitant]
     Indication: HYPOTHYROIDISM

REACTIONS (9)
  - Fatigue [Recovered/Resolved]
  - Sneezing [Recovered/Resolved]
  - Sneezing [Recovered/Resolved]
  - Rhinorrhoea [Recovered/Resolved]
  - Pain [Recovered/Resolved]
  - Influenza like illness [Recovered/Resolved]
  - Nasal congestion [Not Recovered/Not Resolved]
  - Nasal congestion [Not Recovered/Not Resolved]
  - Nasopharyngitis [Recovered/Resolved]
